FAERS Safety Report 4692495-3 (Version None)
Quarter: 2005Q2

REPORT INFORMATION
  Report Type: 
  Country: None (occurrence: None)
  Receive Date: 20050613
  Receipt Date: 20050429
  Transmission Date: 20051028
  Serious: No
  Sender: FDA-Public Use
  Company Number: 2005-00897

PATIENT
  Age: 78 Year
  Sex: Female
  Weight: 49.9 kg

DRUGS (7)
  1. VELCADE [Suspect]
     Indication: MULTIPLE MYELOMA
     Dosage: 2.00 MG
     Dates: start: 20050101, end: 20050425
  2. ARANESP [Concomitant]
  3. ZOMETA [Concomitant]
  4. PERCOCET [Concomitant]
  5. FENTANYL (FENTANYL) PATCH [Concomitant]
  6. XANAX [Concomitant]
  7. MIRTAZAPINE [Concomitant]

REACTIONS (1)
  - PAIN [None]
